FAERS Safety Report 7581975-9 (Version None)
Quarter: 2011Q2

REPORT INFORMATION
  Report Type: 
  Country: None (occurrence: None)
  Receive Date: 20110630
  Receipt Date: 20110622
  Transmission Date: 20111010
  Serious: Yes (Death, Hospitalization)
  Sender: FDA-Public Use
  Company Number: US-BIOGENIDEC-2011BI023283

PATIENT
  Sex: Male

DRUGS (1)
  1. TYSABRI [Suspect]
     Indication: MULTIPLE SCLEROSIS
     Route: 042

REACTIONS (6)
  - DEATH [None]
  - ROAD TRAFFIC ACCIDENT [None]
  - AIR EMBOLISM [None]
  - MULTIPLE FRACTURES [None]
  - FAT EMBOLISM [None]
  - SEPSIS [None]
